FAERS Safety Report 9506053 (Version 1)
Quarter: 2013Q1

REPORT INFORMATION
  Report Type: Spontaneous
  Country: US (occurrence: None)
  Receive Date: 20130305
  Receipt Date: 20130305
  Transmission Date: 20140127
  Serious: Yes (Other)
  Sender: FDA-Public Use
  Company Number: 163-21880-12052465

PATIENT
  Age: 75 Year
  Sex: Female
  Weight: 72.12 kg

DRUGS (18)
  1. REVLIMID [Suspect]
     Indication: PLASMA CELL MYELOMA
     Dosage: 10 MG, CAPSULE, 21 IN 21 D, PO
     Dates: start: 20120222, end: 20120716
  2. PLAVIX (CLOPIDOGREL SULFATE) [Concomitant]
  3. DEXAMETHASONE [Concomitant]
  4. LORAZEPAM [Concomitant]
  5. CALCIUM [Concomitant]
  6. EQUATE ALLERGY RELIEF (LORATADINE) [Concomitant]
  7. EXTRA FIBER (POLYCARBOPHIL CALCIUM) [Concomitant]
  8. LETROZOLE [Concomitant]
  9. OXYCODONE-ACETAMINOPHEN (OXYCOCET) [Concomitant]
  10. ALLEGRA [Concomitant]
  11. ALKERAN (MELPHALAN) [Concomitant]
  12. HYDROXYZINE HCL (HYDROXYZINE HYDROCHLORIDE) [Concomitant]
  13. MAGIC MOUTHWASH (BENZOCAINE) [Concomitant]
  14. ONDANSETRON [Concomitant]
  15. PREDNISONE [Concomitant]
  16. COLACE (DOCUSATE SODIUM) [Concomitant]
  17. FENTANYL (POULTICE OR PATCH) [Concomitant]
  18. RANITIDINE [Concomitant]

REACTIONS (2)
  - Deep vein thrombosis [None]
  - Local swelling [None]
